FAERS Safety Report 4266862-6 (Version None)
Quarter: 2004Q1

REPORT INFORMATION
  Report Type: 
  Country: None (occurrence: None)
  Receive Date: 20040108
  Receipt Date: 20040108
  Transmission Date: 20041129
  Serious: Yes (Other)
  Sender: FDA-Public Use
  Company Number: None

PATIENT
  Sex: Female
  Weight: 104.3273 kg

DRUGS (1)
  1. IMITREX [Suspect]
     Indication: MIGRAINE
     Dosage: 50 MG ONSET ORAL
     Route: 048
     Dates: start: 19990601, end: 20040103

REACTIONS (5)
  - CHEST DISCOMFORT [None]
  - CHEST PAIN [None]
  - DIZZINESS [None]
  - HYPERHIDROSIS [None]
  - PARAESTHESIA [None]
